FAERS Safety Report 8882691 (Version 1)
Quarter: 2012Q4

REPORT INFORMATION
  Report Type: 
  Country: CA (occurrence: CA)
  Receive Date: 20121104
  Receipt Date: 20121104
  Transmission Date: 20130627
  Serious: Yes (Other)
  Sender: FDA-Public Use
  Company Number: PHHY2005CA007818

PATIENT
  Sex: Female

DRUGS (7)
  1. SANDOSTATIN LAR [Suspect]
     Indication: CARCINOID TUMOUR
     Dates: start: 20050207
  2. AMITRIPTYLINE [Concomitant]
  3. ATIVAN [Concomitant]
  4. LIDOCAINE [Concomitant]
  5. LOSEC                                   /CAN/ [Concomitant]
  6. RADIOTHERAPY [Concomitant]
  7. CHEMOTHERAPEUTICS [Concomitant]

REACTIONS (17)
  - Blood pressure decreased [Unknown]
  - Nausea [Unknown]
  - Fatigue [Unknown]
  - Weight increased [Unknown]
  - Arthralgia [Unknown]
  - Tooth disorder [Unknown]
  - Haemoglobin decreased [Unknown]
  - Eye irritation [Unknown]
  - Back pain [Unknown]
  - Discomfort [Unknown]
  - Insomnia [Not Recovered/Not Resolved]
  - Gingival pain [Unknown]
  - Abdominal distension [Unknown]
  - Flatulence [Unknown]
  - Diarrhoea [Unknown]
  - Alopecia [Unknown]
  - Blood glucose decreased [Unknown]
